FAERS Safety Report 11281009 (Version 2)
Quarter: 2015Q3

REPORT INFORMATION
  Report Type: Spontaneous
  Country: US (occurrence: US)
  Receive Date: 20150717
  Receipt Date: 20150824
  Transmission Date: 20151125
  Serious: Yes (Other)
  Sender: FDA-Public Use
  Company Number: US-ELI_LILLY_AND_COMPANY-US201507002964

PATIENT
  Age: 13 Year
  Sex: Male
  Weight: 54.42 kg

DRUGS (1)
  1. HUMATROPE [Suspect]
     Active Substance: SOMATROPIN
     Indication: PRODUCT USED FOR UNKNOWN INDICATION
     Dosage: 1.1 MG, EACH MORNING
     Route: 065

REACTIONS (1)
  - Asperger^s disorder [Unknown]

NARRATIVE: CASE EVENT DATE: 201501
